FAERS Safety Report 7269001-2 (Version None)
Quarter: 2011Q1

REPORT INFORMATION
  Report Type: 
  Country: None (occurrence: None)
  Receive Date: 20110202
  Receipt Date: 20110126
  Transmission Date: 20110831
  Serious: Yes (Other)
  Sender: FDA-Public Use
  Company Number: DE-AMGEN-DEUSP2011005627

PATIENT
  Age: 11 Year
  Sex: Male

DRUGS (3)
  1. ENBREL [Suspect]
     Indication: JUVENILE ARTHRITIS
     Dosage: 10 MG, 2X/WEEK
     Dates: start: 20101020
  2. METHOTREXATE SODIUM [Concomitant]
     Dosage: 15 MG, FREQUENCY UNKNOWN
     Route: 048
  3. GLUCOCORTICOIDS [Concomitant]
     Dosage: 2 MG, UNK

REACTIONS (3)
  - DIARRHOEA [None]
  - GASTROENTERITIS NOROVIRUS [None]
  - VOMITING [None]
